FAERS Safety Report 12615121 (Version 3)
Quarter: 2016Q4

REPORT INFORMATION
  Report Type: Spontaneous
  Country: JP (occurrence: JP)
  Receive Date: 20160802
  Receipt Date: 20161021
  Transmission Date: 20170207
  Serious: Yes (Life-Threatening, Hospitalization, Other)
  Sender: FDA-Public Use
  Company Number: JP-JNJFOC-20160800717

PATIENT
  Age: 82 Year
  Sex: Female
  Weight: 44 kg

DRUGS (2)
  1. REMINYL [Suspect]
     Active Substance: GALANTAMINE
     Indication: DEMENTIA ALZHEIMER^S TYPE
     Dosage: 36 TABLETS (4 MG EACH) IN THE MORNING
     Route: 048
     Dates: start: 20160729
  2. REMINYL [Suspect]
     Active Substance: GALANTAMINE
     Indication: DEMENTIA ALZHEIMER^S TYPE
     Route: 048
     Dates: start: 20160727, end: 20160728

REACTIONS (2)
  - Interstitial lung disease [Unknown]
  - Overdose [Unknown]

NARRATIVE: CASE EVENT DATE: 20160729
